FAERS Safety Report 26177741 (Version 2)
Quarter: 2025Q4

REPORT INFORMATION
  Report Type: Report from Study
  Country: US (occurrence: US)
  Receive Date: 20251219
  Receipt Date: 20251222
  Transmission Date: 20260117
  Serious: No
  Sender: BRISTOL-MYERS SQUIBB COMPANY
  Company Number: US-BRISTOL-MYERS SQUIBB COMPANY-2025-170419

PATIENT
  Sex: Male

DRUGS (1)
  1. COBENFY [Suspect]
     Active Substance: TROSPIUM CHLORIDE\XANOMELINE
     Indication: Product used for unknown indication
     Dosage: 50/20 MG

REACTIONS (8)
  - Halo vision [Unknown]
  - Abdominal pain upper [Unknown]
  - Presbyopia [Unknown]
  - Urinary hesitation [Unknown]
  - Dry mouth [Unknown]
  - Dyspepsia [Unknown]
  - Dry eye [Unknown]
  - Dysuria [Unknown]

NARRATIVE: CASE EVENT DATE: 20251218
